FAERS Safety Report 4503094-8 (Version None)
Quarter: 2004Q4

REPORT INFORMATION
  Report Type: 
  Country: None (occurrence: None)
  Receive Date: 20041117
  Receipt Date: 20040618
  Transmission Date: 20050328
  Serious: Yes (Hospitalization)
  Sender: FDA-Public Use
  Company Number: JP-ROCHE-371470

PATIENT
  Age: 64 Year
  Sex: Male
  Weight: 64.4 kg

DRUGS (2)
  1. PEG-INTERFERON A-2A (RO 25-8310) [Suspect]
     Route: 058
     Dates: start: 20040426, end: 20040713
  2. RESTAMIN [Concomitant]
     Dates: start: 20040528

REACTIONS (26)
  - BASOPHIL COUNT INCREASED [None]
  - CHILLS [None]
  - DYSGEUSIA [None]
  - ERYTHEMA [None]
  - FEELING COLD [None]
  - FEELING HOT [None]
  - GASTRITIS [None]
  - GLUCOSE URINE PRESENT [None]
  - HEADACHE [None]
  - HOT FLUSH [None]
  - HYPERHIDROSIS [None]
  - INJECTION SITE ERYTHEMA [None]
  - INJECTION SITE WARMTH [None]
  - LYMPHOCYTE COUNT DECREASED [None]
  - LYMPHOCYTE COUNT INCREASED [None]
  - MALAISE [None]
  - NEUTROPHIL COUNT DECREASED [None]
  - NIGHT SWEATS [None]
  - PLATELET COUNT DECREASED [None]
  - PRURITUS [None]
  - PYREXIA [None]
  - RASH [None]
  - SOMNOLENCE [None]
  - STOMACH DISCOMFORT [None]
  - VISION BLURRED [None]
  - WHITE BLOOD CELL COUNT DECREASED [None]
